FAERS Safety Report 4610615-3 (Version None)
Quarter: 2005Q1

REPORT INFORMATION
  Report Type: 
  Country: None (occurrence: None)
  Receive Date: 20050316
  Receipt Date: 20050307
  Transmission Date: 20050727
  Serious: Yes (Death)
  Sender: FDA-Public Use
  Company Number: 004330

PATIENT
  Age: 36 Year
  Sex: Female

DRUGS (1)
  1. CLARAVIS [Suspect]
     Dosage: ORAL
     Route: 048
     Dates: start: 20030916

REACTIONS (2)
  - GASTROINTESTINAL HAEMORRHAGE [None]
  - POST PROCEDURAL HAEMORRHAGE [None]
